FAERS Safety Report 24719744 (Version 1)
Quarter: 2024Q4

REPORT INFORMATION
  Report Type: Spontaneous
  Country: US (occurrence: US)
  Receive Date: 20241211
  Receipt Date: 20241211
  Transmission Date: 20250115
  Serious: No
  Sender: ASTELLAS
  Company Number: US-ASTELLAS-2024-AER-023965

PATIENT
  Age: 61 Year
  Sex: Male

DRUGS (4)
  1. MYRBETRIQ [Suspect]
     Active Substance: MIRABEGRON
     Indication: Incontinence
     Dosage: UNKNOWN ROUTE, DOSE AND FREQUENCY
     Route: 065
  2. ORGOVYX [Suspect]
     Active Substance: RELUGOLIX
     Indication: Prostate cancer
     Dosage: 360 MG, UNKNOWN FREQUENCY
     Route: 048
     Dates: start: 20241004, end: 20241004
  3. ORGOVYX [Suspect]
     Active Substance: RELUGOLIX
     Dosage: 120 MG, DAILY
     Route: 048
     Dates: start: 20241005
  4. ORGOVYX [Suspect]
     Active Substance: RELUGOLIX
     Dosage: UNKNOWN DOSE AND FREQUENCY
     Route: 048

REACTIONS (10)
  - Penile discomfort [Unknown]
  - Dyschezia [Unknown]
  - Diarrhoea [Unknown]
  - Mood swings [Unknown]
  - Incontinence [Unknown]
  - Constipation [Unknown]
  - Hot flush [Unknown]
  - Feeling cold [Unknown]
  - Fatigue [Unknown]
  - Insomnia [Unknown]
